FAERS Safety Report 9475447 (Version 1)
Quarter: 2013Q3

REPORT INFORMATION
  Report Type: Spontaneous
  Country: US (occurrence: US)
  Receive Date: 20130826
  Receipt Date: 20130826
  Transmission Date: 20140515
  Serious: No
  Sender: FDA-Public Use
  Company Number: US-B.I. PHARMACEUTICALS,INC./RIDGEFIELD-2013-BI-25533BP

PATIENT
  Age: 69 Year
  Sex: Female
  Weight: 74 kg

DRUGS (16)
  1. COMBIVENT [Suspect]
     Indication: CHRONIC OBSTRUCTIVE PULMONARY DISEASE
     Dosage: STRENGTH: 20 MCG / 100 MCG; DAILY DOSE: 80 MCG / 400 MCG
     Route: 055
     Dates: start: 20130802
  2. COMBIVENT INHALER [Concomitant]
     Indication: CHRONIC OBSTRUCTIVE PULMONARY DISEASE
     Dosage: STRENGTH: 18 MCG / 103 MCG;
     Route: 055
     Dates: start: 2011
  3. ZOFRAN [Concomitant]
     Indication: IMPAIRED GASTRIC EMPTYING
     Dosage: 12 MG
     Route: 048
     Dates: start: 201303
  4. ZOFRAN [Concomitant]
     Indication: GASTROOESOPHAGEAL REFLUX DISEASE
  5. LOSARTAN [Concomitant]
     Indication: HYPERTENSION
     Dosage: 100 MG
     Route: 048
     Dates: start: 2012
  6. ZOLOFT [Concomitant]
     Indication: ANXIETY
     Dosage: 200 MG
     Route: 048
     Dates: start: 1990
  7. KLONOPIN [Concomitant]
     Indication: DEPRESSION
     Dosage: 2 MG
     Route: 048
     Dates: start: 2009
  8. SOTALOL [Concomitant]
     Indication: HYPERTENSION
     Dosage: 40 MG
     Route: 048
     Dates: start: 2004
  9. PLAVIX [Concomitant]
     Indication: CEREBROVASCULAR ACCIDENT
     Dosage: 75 MG
     Route: 048
     Dates: start: 2009
  10. TRAZODONE [Concomitant]
     Indication: DEPRESSION
     Dosage: 100 MG
     Route: 048
     Dates: start: 2001
  11. PERCOCET [Concomitant]
     Indication: INTERVERTEBRAL DISC DEGENERATION
     Route: 048
     Dates: start: 2001
  12. DEXILANT [Concomitant]
     Indication: IMPAIRED GASTRIC EMPTYING
     Dosage: 60 MG
     Route: 048
     Dates: start: 2005
  13. DEXILANT [Concomitant]
     Indication: GASTROOESOPHAGEAL REFLUX DISEASE
  14. ATORVASTATIN [Concomitant]
     Indication: BLOOD CHOLESTEROL INCREASED
     Dosage: 20 MG
     Route: 048
     Dates: start: 201304
  15. LANTUS INSULIN [Concomitant]
     Indication: DIABETES MELLITUS
     Dosage: STRENGTH: 18 UNITS; DAILY DOSE: 18 UNITS
     Route: 058
     Dates: start: 1996
  16. HUMALOG INSULIN [Concomitant]
     Indication: DIABETES MELLITUS
     Dosage: (SUBCUTANEOUS)
     Route: 058
     Dates: start: 1996

REACTIONS (6)
  - Oropharyngeal pain [Not Recovered/Not Resolved]
  - Glossodynia [Not Recovered/Not Resolved]
  - Oral pain [Not Recovered/Not Resolved]
  - Visual acuity reduced [Not Recovered/Not Resolved]
  - Cough [Not Recovered/Not Resolved]
  - Conjunctivitis [Recovered/Resolved]
